FAERS Safety Report 7474834-3 (Version None)
Quarter: 2011Q2

REPORT INFORMATION
  Report Type: 
  Country: None (occurrence: None)
  Receive Date: 20110512
  Receipt Date: 20110407
  Transmission Date: 20111010
  Serious: Yes (Other)
  Sender: FDA-Public Use
  Company Number: US-BAYER-201028629NA

PATIENT
  Age: 21 Year
  Sex: Female
  Weight: 99.773 kg

DRUGS (14)
  1. YAZ [Suspect]
     Indication: POLYCYSTIC OVARIES
  2. PROVENTIL [Concomitant]
     Dosage: 2 PUFF(S), QID
     Route: 055
  3. ANTIBIOTICS [Concomitant]
     Dosage: UNK
     Dates: start: 20090413
  4. YASMIN [Suspect]
     Indication: CONTRACEPTION
     Dosage: UNK UNK, QD
     Route: 048
     Dates: start: 20081001, end: 20081201
  5. YAZ [Suspect]
     Indication: CONTRACEPTION
     Dosage: UNK UNK, QD
     Route: 048
     Dates: start: 20080801, end: 20081001
  6. GLUCOPHAGE [Concomitant]
  7. DROSPIRENONE AND ETHINYL ESTRADIOL [Suspect]
     Indication: CONTRACEPTION
     Dosage: UNK
     Dates: start: 20080101
  8. CARAFATE [Concomitant]
     Dosage: 1 G, UNK
     Route: 048
  9. YASMIN [Suspect]
     Indication: POLYCYSTIC OVARIES
  10. PAIN MEDICATION [Concomitant]
     Dosage: UNK
     Dates: start: 20090413
  11. PROTONIX [Concomitant]
     Dosage: 40 MG, QD
     Route: 048
  12. ORTHO TRI-CYCLEN [Concomitant]
  13. PRILOSEC [Concomitant]
  14. METFORMIN HCL [Concomitant]

REACTIONS (4)
  - GASTROOESOPHAGEAL REFLUX DISEASE [None]
  - CHOLECYSTITIS CHRONIC [None]
  - CHOLECYSTITIS [None]
  - ABDOMINAL PAIN UPPER [None]
